FAERS Safety Report 7728569-X (Version None)
Quarter: 2011Q3

REPORT INFORMATION
  Report Type: 
  Country: None (occurrence: None)
  Receive Date: 20110906
  Receipt Date: 20110825
  Transmission Date: 20111222
  Serious: No
  Sender: FDA-Public Use
  Company Number: 2009BI013708

PATIENT
  Sex: Male
  Weight: 61 kg

DRUGS (1)
  1. TYSABRI [Suspect]
     Indication: MULTIPLE SCLEROSIS
     Route: 042
     Dates: start: 20081208

REACTIONS (9)
  - PERSONALITY CHANGE [None]
  - INSOMNIA [None]
  - FATIGUE [None]
  - DEPRESSION [None]
  - HEADACHE [None]
  - INITIAL INSOMNIA [None]
  - WEIGHT DECREASED [None]
  - ASTHENIA [None]
  - DECREASED APPETITE [None]
